FAERS Safety Report 8080398-6 (Version None)
Quarter: 2012Q1

REPORT INFORMATION
  Report Type: 
  Country: None (occurrence: None)
  Receive Date: 20120130
  Receipt Date: 20120130
  Transmission Date: 20120608
  Serious: Yes (Death, Hospitalization)
  Sender: FDA-Public Use
  Company Number: JP-JNJFOC-20110305652

PATIENT
  Sex: Male
  Weight: 45 kg

DRUGS (18)
  1. RABEPRAZOLE SODIUM [Concomitant]
     Route: 048
  2. OLOPATADINE HCL [Concomitant]
     Route: 048
  3. REMICADE [Suspect]
     Route: 042
     Dates: start: 20100325
  4. REMICADE [Suspect]
     Route: 042
     Dates: start: 20101019
  5. LIPITOR [Concomitant]
     Route: 048
  6. ALLEGRA [Concomitant]
     Route: 048
  7. REMICADE [Suspect]
     Route: 042
     Dates: start: 20101229
  8. LENDORMIN [Concomitant]
     Route: 048
  9. METHOTREXATE [Concomitant]
     Indication: ERYTHRODERMIC PSORIASIS
     Route: 048
     Dates: start: 20100105, end: 20100904
  10. NORVASC [Concomitant]
     Route: 048
  11. ZOLPIDEM [Concomitant]
     Route: 048
  12. REMICADE [Suspect]
     Indication: ERYTHRODERMIC PSORIASIS
     Route: 042
  13. REMICADE [Suspect]
     Route: 042
  14. ISONIAZID [Concomitant]
     Route: 048
     Dates: start: 20100304
  15. REMICADE [Suspect]
     Route: 042
  16. REMICADE [Suspect]
     Route: 042
     Dates: start: 20100824
  17. SULFAMETHOXAZOLE [Concomitant]
     Route: 048
     Dates: start: 20100130
  18. PYDOXAL [Concomitant]
     Route: 048
     Dates: start: 20100304

REACTIONS (7)
  - PNEUMOTHORAX [None]
  - SEPSIS [None]
  - RESPIRATORY DISORDER [None]
  - CHOLECYSTITIS ACUTE [None]
  - DISSEMINATED INTRAVASCULAR COAGULATION [None]
  - SHOCK [None]
  - INFLUENZA [None]
